FAERS Safety Report 7399100-6 (Version None)
Quarter: 2011Q2

REPORT INFORMATION
  Report Type: 
  Country: None (occurrence: None)
  Receive Date: 20110407
  Receipt Date: 20090101
  Transmission Date: 20111010
  Serious: Yes (Death, Hospitalization, Other)
  Sender: FDA-Public Use
  Company Number: US-BAYER-200841636NA

PATIENT
  Sex: Male
  Weight: 84 kg

DRUGS (26)
  1. TRASYLOL [Suspect]
     Indication: INTRA-AORTIC BALLOON PLACEMENT
     Dosage: 50 CC/HR
     Route: 042
     Dates: start: 20040315, end: 20040315
  2. LIDOCAINE [Concomitant]
     Dosage: 200 MG, UNK
     Route: 042
     Dates: start: 20040315, end: 20040318
  3. RED BLOOD CELLS [Concomitant]
     Dosage: 1 U, UNK
     Route: 042
     Dates: start: 20040301
  4. FENTANYL [Concomitant]
     Dosage: 30 MICROGRAMS
     Route: 042
     Dates: start: 20040315, end: 20040315
  5. ALBUTEROL [Concomitant]
     Dosage: 4 PUFFS INHALATION
     Dates: start: 20040315
  6. ZOSYN [Concomitant]
     Dosage: UNK
     Dates: start: 20040322
  7. VERSED [Concomitant]
     Dosage: DRIP
     Route: 042
     Dates: start: 20040329
  8. NEO-SYNEPHRINOL [Concomitant]
     Dosage: UNK
     Route: 042
     Dates: start: 20040315, end: 20040315
  9. LEVOPHED [Concomitant]
     Dosage: UNK
     Route: 042
     Dates: start: 20040315, end: 20040331
  10. THROMBIN LOCAL SOLUTION [Concomitant]
     Dosage: 20000 U, UNK
     Route: 042
     Dates: start: 20040315, end: 20040315
  11. LASIX [Concomitant]
     Dosage: DRIP
     Route: 042
     Dates: start: 20040319
  12. TRASYLOL [Suspect]
     Indication: CARDIAC PACEMAKER INSERTION
     Dosage: DRIP CONTINUED POST OPERATIVELY AT 25 CC/HOUR UNTIL INFUSION COMPLETED
     Route: 042
     Dates: start: 20040315, end: 20040315
  13. PAPAVERINE [Concomitant]
     Dosage: 120 MG, UNK
     Route: 042
     Dates: start: 20040315, end: 20040315
  14. MANNITOL [Concomitant]
     Dosage: 12.5 G, UNK
     Route: 042
     Dates: start: 20040315, end: 20040315
  15. VERSED [Concomitant]
     Dosage: 10 MG, UNK
     Route: 042
     Dates: start: 20040315, end: 20040315
  16. CALCIUM CARBONATE [Concomitant]
     Dosage: 1 G, UNK
     Route: 042
     Dates: start: 20040315, end: 20040315
  17. NIMBEX [Concomitant]
     Dosage: 60
     Route: 042
     Dates: start: 20040315, end: 20040315
  18. CIPROFLOXACIN [Concomitant]
     Dosage: UNK
     Dates: start: 20040322
  19. TRASYLOL [Suspect]
     Indication: CORONARY ARTERY BYPASS
     Dosage: 200 CC PUMP PRIME
     Route: 042
     Dates: start: 20040315, end: 20040315
  20. MAGNESIUM SULFATE [Concomitant]
     Dosage: 2 G, UNK
     Route: 042
     Dates: start: 20040315, end: 20040315
  21. ANCEF [Concomitant]
     Dosage: 1 G, UNK
     Route: 042
     Dates: start: 20040315
  22. SODIUM BICARBONATE [Concomitant]
     Dosage: 50 MEQ, UNK
     Route: 042
     Dates: start: 20040315, end: 20040315
  23. NATRECOR [Concomitant]
     Dosage: UNK
     Dates: start: 20040321
  24. LIPITOR [Concomitant]
     Dosage: UNK
     Dates: start: 19900101, end: 20040101
  25. HEPARIN [Concomitant]
     Dosage: 36000 U, UNK
     Route: 042
     Dates: start: 20040315, end: 20040315
  26. PROTAMINE SULFATE [Concomitant]
     Dosage: UNK
     Route: 042
     Dates: start: 20040315, end: 20040315

REACTIONS (4)
  - MYOCARDIAL INFARCTION [None]
  - RENAL FAILURE [None]
  - VENTRICULAR TACHYCARDIA [None]
  - INJURY [None]
